FAERS Safety Report 9613399 (Version 1)
Quarter: 2013Q4

REPORT INFORMATION
  Report Type: Spontaneous
  Country: FR (occurrence: None)
  Receive Date: 20131008
  Receipt Date: 20131008
  Transmission Date: 20140711
  Serious: Yes (Other)
  Sender: FDA-Public Use
  Company Number: LOC-01180

PATIENT
  Sex: Male

DRUGS (2)
  1. LOCOID [Suspect]
     Indication: ECZEMA
     Route: 061
  2. STILLNOX (ZOLPIDEM TARTRATE) ; UNKNOWN [Concomitant]

REACTIONS (2)
  - Intentional drug misuse [None]
  - Tinnitus [None]
